FAERS Safety Report 8512510-6 (Version None)
Quarter: 2012Q3

REPORT INFORMATION
  Report Type: 
  Country: None (occurrence: None)
  Receive Date: 20120716
  Receipt Date: 20120705
  Transmission Date: 20120928
  Serious: Yes (Other)
  Sender: FDA-Public Use
  Company Number: JP-GLAXOSMITHKLINE-B0811484A

PATIENT
  Age: 3 Year
  Sex: Male

DRUGS (7)
  1. CYCLOPHOSPHAMIDE [Concomitant]
     Indication: EWING'S SARCOMA
     Dosage: 4800MGM2 PER DAY
     Route: 042
  2. CARBOPLATIN [Suspect]
     Indication: EWING'S SARCOMA
     Dosage: 1600MGM2 PER DAY
     Route: 042
  3. ETOPOSIDE [Suspect]
     Indication: EWING'S SARCOMA
     Dosage: 800MGM2 PER DAY
     Route: 042
  4. IFOSFAMIDE [Concomitant]
     Indication: EWING'S SARCOMA
     Route: 042
  5. VINCRISTINE [Concomitant]
     Indication: EWING'S SARCOMA
     Dosage: 6MGM2 PER DAY
     Route: 042
  6. PIRARUBICIN [Concomitant]
     Indication: EWING'S SARCOMA
     Dosage: 300MGM2 PER DAY
     Route: 042
  7. MELPHALAN HYDROCHLORIDE [Suspect]
     Indication: EWING'S SARCOMA
     Dosage: 200MGM2 PER DAY
     Route: 042

REACTIONS (11)
  - HAEMOLYTIC URAEMIC SYNDROME [None]
  - HAPTOGLOBIN DECREASED [None]
  - HYPERTENSION [None]
  - WEIGHT INCREASED [None]
  - PROTEINURIA [None]
  - BLOOD LACTATE DEHYDROGENASE INCREASED [None]
  - FIBRIN D DIMER INCREASED [None]
  - HAEMATURIA [None]
  - HAEMOLYSIS [None]
  - PLATELET COUNT DECREASED [None]
  - OEDEMA [None]
